FAERS Safety Report 7899932-1 (Version None)
Quarter: 2011Q4

REPORT INFORMATION
  Report Type: 
  Country: None (occurrence: None)
  Receive Date: 20111107
  Receipt Date: 20111010
  Transmission Date: 20120403
  Serious: No
  Sender: FDA-Public Use
  Company Number: US-AMGEN-USASP2011038212

PATIENT
  Age: 51 Year
  Sex: Female
  Weight: 65.76 kg

DRUGS (6)
  1. ADDERALL 5 [Concomitant]
  2. ENBREL [Suspect]
     Indication: PSORIATIC ARTHROPATHY
  3. VITAMIN D [Concomitant]
     Dosage: UNK
  4. PROZAC [Concomitant]
     Dosage: UNK
  5. FISH OIL [Concomitant]
  6. ENBREL [Suspect]
     Indication: PSORIASIS
     Dosage: 50 MG, QWK
     Route: 058
     Dates: start: 20070619

REACTIONS (2)
  - VISION BLURRED [None]
  - ARTHROPOD BITE [None]
